FAERS Safety Report 7819994-7 (Version None)
Quarter: 2011Q4

REPORT INFORMATION
  Report Type: 
  Country: None (occurrence: None)
  Receive Date: 20111018
  Receipt Date: 20111014
  Transmission Date: 20120403
  Serious: Yes (Hospitalization, Other)
  Sender: FDA-Public Use
  Company Number: US-PFIZER INC-2011054502

PATIENT
  Sex: Female

DRUGS (7)
  1. CAMPRAL [Concomitant]
     Dosage: UNK
     Dates: start: 20070601, end: 20071001
  2. CHANTIX [Suspect]
     Indication: SMOKING CESSATION THERAPY
     Dosage: STARTER AND 1 MG MONTHLY CONTINUING PACKS
     Dates: start: 20070709, end: 20070801
  3. LAMICTAL [Concomitant]
     Indication: CONVULSION
  4. DILAUDID [Concomitant]
     Indication: PAIN
     Dosage: UNK
     Dates: start: 20070201, end: 20070901
  5. DILAUDID [Concomitant]
     Indication: INJURY
  6. CLONAZEPAM [Concomitant]
     Indication: ANXIETY
     Dosage: UNK
     Dates: start: 20070101
  7. LAMICTAL [Concomitant]
     Indication: BIPOLAR DISORDER
     Dosage: UNK
     Dates: start: 20070201, end: 20080701

REACTIONS (4)
  - INJURY [None]
  - SUICIDE ATTEMPT [None]
  - AGGRESSION [None]
  - DEPRESSION [None]
